FAERS Safety Report 25797665 (Version 1)
Quarter: 2025Q3

REPORT INFORMATION
  Report Type: Spontaneous
  Country: US (occurrence: US)
  Receive Date: 20250912
  Receipt Date: 20250912
  Transmission Date: 20251021
  Serious: No
  Sender: REGENERON
  Company Number: US-REGENERON PHARMACEUTICALS, INC.-2025-076797

PATIENT
  Sex: Female

DRUGS (6)
  1. EYLEA HD [Suspect]
     Active Substance: AFLIBERCEPT
     Indication: Neovascular age-related macular degeneration
     Dosage: UNK,EVERY 8 WEEKS INTO LEFT EYE (FORMULATION: HD VIAL)
     Route: 031
     Dates: start: 20240725, end: 20240725
  2. EYLEA HD [Suspect]
     Active Substance: AFLIBERCEPT
     Dosage: UNK,EVERY 8 WEEKS INTO LEFT EYE (FORMULATION: HD VIAL)
     Route: 031
     Dates: start: 20240926, end: 20240926
  3. EYLEA HD [Suspect]
     Active Substance: AFLIBERCEPT
     Dosage: UNK,EVERY 8 WEEKS INTO LEFT EYE (FORMULATION: HD VIAL)
     Route: 031
     Dates: start: 20241119, end: 20241119
  4. EYLEA HD [Suspect]
     Active Substance: AFLIBERCEPT
     Dosage: UNK,EVERY 8 WEEKS INTO LEFT EYE (FORMULATION: HD VIAL)
     Route: 031
     Dates: start: 20250205, end: 20250205
  5. EYLEA HD [Suspect]
     Active Substance: AFLIBERCEPT
     Dosage: UNK,EVERY 8 WEEKS INTO LEFT EYE, FORMULATION: HD VIAL
     Route: 031
     Dates: start: 20250417, end: 20250417
  6. AVASTIN [Concomitant]
     Active Substance: BEVACIZUMAB
     Indication: Product used for unknown indication

REACTIONS (3)
  - Intraocular pressure increased [Unknown]
  - Eye pain [Unknown]
  - Lacrimation increased [Unknown]

NARRATIVE: CASE EVENT DATE: 20240101
